FAERS Safety Report 25945645 (Version 1)
Quarter: 2025Q4

REPORT INFORMATION
  Report Type: Spontaneous
  Country: CA (occurrence: CA)
  Receive Date: 20251021
  Receipt Date: 20251021
  Transmission Date: 20260118
  Serious: Yes (Other)
  Sender: OTSUKA
  Company Number: CA-MMM-Otsuka-RF0ZTMOX

PATIENT
  Age: 76 Year
  Sex: Male

DRUGS (1)
  1. REXULTI [Suspect]
     Active Substance: BREXPIPRAZOLE
     Indication: Dementia
     Dosage: UNK
     Route: 065

REACTIONS (3)
  - Dementia [Unknown]
  - Aggression [Recovering/Resolving]
  - Agitation [Recovering/Resolving]
